FAERS Safety Report 6572530-8 (Version None)
Quarter: 2010Q1

REPORT INFORMATION
  Report Type: 
  Country: None (occurrence: None)
  Receive Date: 20100205
  Receipt Date: 20100201
  Transmission Date: 20100710
  Serious: Yes (Other)
  Sender: FDA-Public Use
  Company Number: US-PFIZER INC-2010014459

PATIENT
  Sex: Female
  Weight: 97.522 kg

DRUGS (3)
  1. CHANTIX [Suspect]
     Indication: SMOKING CESSATION THERAPY
     Dosage: 0.5 MG, 1X/DAY
     Dates: start: 20100101, end: 20100129
  2. GLYBURIDE [Interacting]
     Indication: DIABETES MELLITUS
     Dosage: 5 MG, 1X/DAY
     Dates: start: 20100101
  3. SIMVASTATIN [Concomitant]
     Dates: start: 20100101

REACTIONS (6)
  - BLOOD GLUCOSE DECREASED [None]
  - BLOOD GLUCOSE INCREASED [None]
  - DRUG INTERACTION [None]
  - FLATULENCE [None]
  - INSOMNIA [None]
  - PRESYNCOPE [None]
